FAERS Safety Report 9735486 (Version 3)
Quarter: 2015Q3

REPORT INFORMATION
  Report Type: Spontaneous
  Country: US (occurrence: US)
  Receive Date: 20131206
  Receipt Date: 20150804
  Transmission Date: 20151125
  Serious: No
  Sender: FDA-Public Use
  Company Number: US-GILEAD-2009-0023230

PATIENT
  Age: 47 Year
  Sex: Female
  Weight: 56.7 kg

DRUGS (14)
  1. LETAIRIS [Suspect]
     Active Substance: AMBRISENTAN
     Route: 048
     Dates: start: 20090425, end: 200907
  2. FOLIC ACID. [Concomitant]
     Active Substance: FOLIC ACID
  3. METHOTREXATE [Concomitant]
     Active Substance: METHOTREXATE
  4. PLAQUENIL [Concomitant]
     Active Substance: HYDROXYCHLOROQUINE SULFATE
  5. NEXIUM [Concomitant]
     Active Substance: ESOMEPRAZOLE MAGNESIUM
  6. PREDNISONE. [Concomitant]
     Active Substance: PREDNISONE
  7. COUMADIN [Concomitant]
     Active Substance: WARFARIN SODIUM
  8. DIGOXIN. [Concomitant]
     Active Substance: DIGOXIN
  9. TOPROL XL [Concomitant]
     Active Substance: METOPROLOL SUCCINATE
  10. ALDACTONE [Concomitant]
     Active Substance: SPIRONOLACTONE
  11. LETAIRIS [Suspect]
     Active Substance: AMBRISENTAN
     Indication: PULMONARY ARTERIAL HYPERTENSION
     Route: 048
     Dates: start: 200907
  12. LEVOTHYROXINE. [Concomitant]
     Active Substance: LEVOTHYROXINE
  13. LASIX [Concomitant]
     Active Substance: FUROSEMIDE
  14. KEPPRA [Concomitant]
     Active Substance: LEVETIRACETAM

REACTIONS (1)
  - Liver function test abnormal [Unknown]
